FAERS Safety Report 25408446 (Version 2)
Quarter: 2025Q3

REPORT INFORMATION
  Report Type: Spontaneous
  Country: CA (occurrence: CA)
  Receive Date: 20250606
  Receipt Date: 20250709
  Transmission Date: 20251020
  Serious: Yes (Life-Threatening, Hospitalization, Other)
  Sender: PURDUE
  Company Number: CA-PURDUE-USA-2025-0317948

PATIENT
  Age: 18 Year
  Sex: Female

DRUGS (2)
  1. LISDEXAMFETAMINE DIMESYLATE [Suspect]
     Active Substance: LISDEXAMFETAMINE DIMESYLATE
     Indication: Attention deficit hyperactivity disorder
     Dosage: 60 MILLIGRAM, DAILY
     Route: 048
  2. LISDEXAMFETAMINE DIMESYLATE [Suspect]
     Active Substance: LISDEXAMFETAMINE DIMESYLATE
     Route: 048

REACTIONS (9)
  - Cardiac failure acute [Unknown]
  - Intentional overdose [Unknown]
  - Suicidal ideation [Unknown]
  - Respiratory failure [Unknown]
  - Dyspnoea [Unknown]
  - Pleurisy [Unknown]
  - Sputum discoloured [Unknown]
  - Stress cardiomyopathy [Unknown]
  - Oxygen saturation decreased [Unknown]
